FAERS Safety Report 10265079 (Version 1)
Quarter: 2014Q2

REPORT INFORMATION
  Report Type: Spontaneous
  Country: GB (occurrence: GB)
  Receive Date: 20140627
  Receipt Date: 20140627
  Transmission Date: 20141212
  Serious: Yes (Other)
  Sender: FDA-Public Use
  Company Number: PHHY2014GB076651

PATIENT
  Age: 51 Year
  Sex: Male
  Weight: 87.53 kg

DRUGS (4)
  1. LORATADIN [Suspect]
     Indication: SEASONAL ALLERGY
     Dosage: 10 MG, QD
     Route: 048
  2. GLICLAZIDE [Concomitant]
  3. METFORMIN [Concomitant]
  4. RAMIPRIL [Concomitant]

REACTIONS (4)
  - Lymphadenopathy [Recovered/Resolved]
  - Decreased appetite [Recovered/Resolved]
  - Dizziness [Recovered/Resolved]
  - Somnolence [Recovered/Resolved]
